FAERS Safety Report 22187376 (Version 9)
Quarter: 2023Q4

REPORT INFORMATION
  Report Type: Spontaneous
  Country: US (occurrence: US)
  Receive Date: 20230407
  Receipt Date: 20231229
  Transmission Date: 20240109
  Serious: No
  Sender: FDA-Public Use
  Company Number: US-BRISTOL-MYERS SQUIBB COMPANY-2023-050042

PATIENT
  Age: 71 Year
  Sex: Male

DRUGS (3)
  1. REVLIMID [Suspect]
     Active Substance: LENALIDOMIDE
     Indication: Plasma cell myeloma
     Route: 048
     Dates: start: 202304
  2. REVLIMID [Suspect]
     Active Substance: LENALIDOMIDE
     Dosage: QD FOR 14 DAYS
     Route: 048
  3. REVLIMID [Suspect]
     Active Substance: LENALIDOMIDE
     Route: 048

REACTIONS (21)
  - Constipation [Unknown]
  - Joint swelling [Unknown]
  - Asthenia [Unknown]
  - Fatigue [Unknown]
  - Peripheral swelling [Unknown]
  - Paraesthesia [Unknown]
  - Pain of skin [Unknown]
  - Muscle spasms [Unknown]
  - Vitreous floaters [Unknown]
  - Gingival pain [Unknown]
  - Vision blurred [Unknown]
  - Visual impairment [Unknown]
  - Back pain [Unknown]
  - Dyspnoea [Unknown]
  - Bone pain [Unknown]
  - Off label use [Unknown]
  - Hypoaesthesia [Unknown]
  - Weight increased [Unknown]
  - Contusion [Unknown]
  - Increased appetite [Unknown]
  - Influenza [Recovering/Resolving]

NARRATIVE: CASE EVENT DATE: 20230410
